FAERS Safety Report 19082205 (Version 1)
Quarter: 2021Q2

REPORT INFORMATION
  Report Type: Spontaneous
  Country: US (occurrence: US)
  Receive Date: 20210401
  Receipt Date: 20210401
  Transmission Date: 20210717
  Serious: Yes (Hospitalization)
  Sender: FDA-Public Use
  Company Number: US-SA-2021SA100174

PATIENT
  Age: 64 Year
  Sex: Male

DRUGS (9)
  1. ELOXATIN [Suspect]
     Active Substance: OXALIPLATIN
     Dosage: 255 MG/M2, BID
     Route: 042
     Dates: start: 20210211
  2. ELOXATIN [Suspect]
     Active Substance: OXALIPLATIN
     Indication: OESOPHAGEAL ADENOCARCINOMA
     Dosage: 255 MG/M2, BID
     Route: 042
     Dates: start: 20210107
  3. CAPECITABINE. [Suspect]
     Active Substance: CAPECITABINE
     Indication: OESOPHAGEAL ADENOCARCINOMA
     Dosage: 4000 MG/M2, BID
     Route: 048
     Dates: start: 20210107
  4. CAPECITABINE. [Suspect]
     Active Substance: CAPECITABINE
     Dosage: 4000 MG/M2, BID
     Route: 048
     Dates: start: 20210211
  5. ELOXATIN [Suspect]
     Active Substance: OXALIPLATIN
     Dosage: 195 MG, Q3W
     Route: 042
     Dates: start: 20210304
  6. IMODIUM [Concomitant]
     Active Substance: LOPERAMIDE HYDROCHLORIDE
     Dosage: FINAL DOSE
     Dates: start: 20210213
  7. TISLELIZUMAB [Concomitant]
     Active Substance: TISLELIZUMAB
     Indication: OESOPHAGEAL ADENOCARCINOMA
     Dosage: 200 MG, QD
     Dates: start: 20210107
  8. CAPECITABINE. [Suspect]
     Active Substance: CAPECITABINE
     Dosage: 3000 MG, Q3W
     Route: 048
     Dates: start: 20210304
  9. IMODIUM [Concomitant]
     Active Substance: LOPERAMIDE HYDROCHLORIDE
     Dosage: 2 1/2 DOSES AND 2 DOSES

REACTIONS (5)
  - Diarrhoea [Recovered/Resolved]
  - Abdominal pain [Recovered/Resolved]
  - Nausea [Unknown]
  - Chills [Unknown]
  - Vomiting [Unknown]

NARRATIVE: CASE EVENT DATE: 20210212
